FAERS Safety Report 21067582 (Version 1)
Quarter: 2022Q3

REPORT INFORMATION
  Report Type: Spontaneous
  Country: US (occurrence: US)
  Receive Date: 20220712
  Receipt Date: 20220712
  Transmission Date: 20221027
  Serious: Yes (Other)
  Sender: FDA-Public Use
  Company Number: US-SA-SAC20220710000062

PATIENT
  Sex: Male

DRUGS (6)
  1. DUPIXENT [Suspect]
     Active Substance: DUPILUMAB
     Indication: Dermatitis atopic
     Dosage: UNK UNK, QOW
  2. STELARA [Suspect]
     Active Substance: USTEKINUMAB
     Dosage: UNK, Q8W
  3. STELARA [Suspect]
     Active Substance: USTEKINUMAB
     Dosage: UNK, Q6W
  4. PROBIOTICS NOS [Concomitant]
     Active Substance: PROBIOTICS NOS
     Dosage: UNK
  5. LIALDA [Concomitant]
     Active Substance: MESALAMINE
     Dosage: UNK
  6. VITAMINS [Concomitant]
     Active Substance: VITAMINS
     Dosage: UNK

REACTIONS (4)
  - Acute haemorrhagic ulcerative colitis [Unknown]
  - Frequent bowel movements [Unknown]
  - Thrombocytosis [Unknown]
  - Pseudopolyposis [Unknown]
